FAERS Safety Report 16881921 (Version 4)
Quarter: 2019Q4

REPORT INFORMATION
  Report Type: Spontaneous
  Country: US (occurrence: US)
  Receive Date: 20191003
  Receipt Date: 20191209
  Transmission Date: 20200122
  Serious: Yes (Other)
  Sender: FDA-Public Use
  Company Number: US-SUNOVION-2019SUN004082

PATIENT

DRUGS (1)
  1. LATUDA [Suspect]
     Active Substance: LURASIDONE HYDROCHLORIDE
     Dosage: 60 MG
     Route: 048

REACTIONS (8)
  - Pain [Unknown]
  - Fatigue [Unknown]
  - Dyspepsia [Unknown]
  - Somnolence [Unknown]
  - Psychotic disorder [Unknown]
  - Hallucination [Unknown]
  - Hypersomnia [Unknown]
  - Nausea [Unknown]
